FAERS Safety Report 8268989-0 (Version None)
Quarter: 2012Q2

REPORT INFORMATION
  Report Type: 
  Country: None (occurrence: None)
  Receive Date: 20120409
  Receipt Date: 20120406
  Transmission Date: 20120825
  Serious: No
  Sender: FDA-Public Use
  Company Number: BR-JNJFOC-20120311256

PATIENT
  Age: 38 Year
  Sex: Male
  Weight: 72 kg

DRUGS (6)
  1. BUPROPION HCL [Concomitant]
     Route: 048
     Dates: start: 20111001
  2. GABAPENTIN [Concomitant]
     Indication: NEUROPATHY PERIPHERAL
     Route: 048
     Dates: start: 20100901
  3. DURAGESIC-100 [Suspect]
     Indication: PAIN IN EXTREMITY
     Route: 062
     Dates: start: 20120316
  4. TOPIRAMATE [Suspect]
     Indication: MOOD ALTERED
     Route: 048
     Dates: start: 20110101
  5. VENLAFAXINE HYDROCHLORIDE [Concomitant]
     Indication: NEUROPATHY PERIPHERAL
     Route: 048
     Dates: start: 20120101
  6. OMEPRAZOLE [Concomitant]
     Indication: GASTROINTESTINAL DISORDER THERAPY
     Route: 048
     Dates: start: 20101001

REACTIONS (5)
  - WRONG TECHNIQUE IN DRUG USAGE PROCESS [None]
  - PAIN IN EXTREMITY [None]
  - HYPERSENSITIVITY [None]
  - NERVOUSNESS [None]
  - PRODUCT QUALITY ISSUE [None]
